FAERS Safety Report 9394262 (Version 4)
Quarter: 2013Q4

REPORT INFORMATION
  Report Type: Spontaneous
  Country: US (occurrence: US)
  Receive Date: 20130711
  Receipt Date: 20131009
  Transmission Date: 20140711
  Serious: Yes (Other)
  Sender: FDA-Public Use
  Company Number: US-009507513-1307USA004192

PATIENT
  Sex: Female
  Weight: 63.49 kg

DRUGS (5)
  1. PEGINTRON [Suspect]
     Indication: HEPATITIS C
     Dosage: REDIPEN
     Dates: start: 20130415, end: 20130607
  2. PEGINTRON [Suspect]
     Dosage: REDIPEN
     Dates: start: 20130707, end: 20130922
  3. REBETOL [Suspect]
     Indication: HEPATITIS C
     Dosage: UNK
     Route: 048
     Dates: start: 20130415, end: 20130922
  4. PEGASYS [Suspect]
     Indication: HEPATITIS C
     Dosage: UNK
     Dates: start: 20130609, end: 20130630
  5. PROZAC [Concomitant]

REACTIONS (37)
  - Hypoparathyroidism [Unknown]
  - Hyperthyroidism [Unknown]
  - Joint stiffness [Unknown]
  - Bedridden [Unknown]
  - Confusional state [Unknown]
  - Memory impairment [Unknown]
  - Pain [Unknown]
  - Pain [Not Recovered/Not Resolved]
  - Back pain [Not Recovered/Not Resolved]
  - Influenza [Unknown]
  - Heart rate increased [Unknown]
  - Crying [Unknown]
  - Coordination abnormal [Unknown]
  - Memory impairment [Not Recovered/Not Resolved]
  - Alopecia [Not Recovered/Not Resolved]
  - Arthralgia [Not Recovered/Not Resolved]
  - Weight decreased [Unknown]
  - Arthralgia [Unknown]
  - Influenza like illness [Recovered/Resolved]
  - Anxiety [Unknown]
  - Dyspnoea [Unknown]
  - Anxiety [Not Recovered/Not Resolved]
  - White blood cell count decreased [Unknown]
  - Dyspnoea [Unknown]
  - Abasia [Unknown]
  - Nausea [Unknown]
  - Bone pain [Unknown]
  - Influenza like illness [Unknown]
  - Alopecia [Unknown]
  - Depression [Unknown]
  - Heart rate increased [Unknown]
  - Anxiety [Unknown]
  - Pain [Unknown]
  - Arthralgia [Unknown]
  - Alopecia [Unknown]
  - Hair texture abnormal [Unknown]
  - Hypothyroidism [Unknown]
